FAERS Safety Report 9303196 (Version 2)
Quarter: 2013Q3

REPORT INFORMATION
  Report Type: Spontaneous
  Country: US (occurrence: US)
  Receive Date: 20130522
  Receipt Date: 20130710
  Transmission Date: 20140515
  Serious: No
  Sender: FDA-Public Use
  Company Number: US-PFIZER INC-2013156148

PATIENT
  Age: 40 Year
  Sex: Male
  Weight: 80 kg

DRUGS (6)
  1. DEPO-MEDROL [Suspect]
     Indication: ASTHMA
     Dosage: 400 MG ONCE
     Route: 042
     Dates: start: 20130519, end: 20130519
  2. ADVAIR [Concomitant]
     Dosage: 500, 2X/DAY
  3. XOPENEX [Concomitant]
     Dosage: NEB OF 6H
     Route: 045
  4. MOXIFLOXACIN [Concomitant]
     Dosage: 400 MG
     Route: 042
  5. PREDNISONE [Concomitant]
     Dosage: 50 MG
     Route: 048
  6. DUONEB [Concomitant]
     Dosage: OF 4H

REACTIONS (3)
  - Incorrect route of drug administration [Recovered/Resolved]
  - Wrong drug administered [Recovered/Resolved]
  - Blood phosphorus decreased [Recovered/Resolved]
